FAERS Safety Report 10706800 (Version 1)
Quarter: 2015Q1

REPORT INFORMATION
  Report Type: Spontaneous
  Country: FR (occurrence: FR)
  Receive Date: 20150113
  Receipt Date: 20150113
  Transmission Date: 20150721
  Serious: Yes (Other)
  Sender: FDA-Public Use
  Company Number: FR-SA-2015SA002377

PATIENT
  Age: 89 Year
  Sex: Male

DRUGS (12)
  1. DISCOTRINE [Concomitant]
     Active Substance: NITROGLYCERIN
  2. SYMBICORT [Concomitant]
     Active Substance: BUDESONIDE\FORMOTEROL FUMARATE DIHYDRATE
  3. PREVISCAN [Concomitant]
     Active Substance: FLUINDIONE
     Route: 048
  4. LASILIX [Suspect]
     Active Substance: FUROSEMIDE
     Route: 042
  5. LASILIX [Suspect]
     Active Substance: FUROSEMIDE
     Dosage: DAILY DOSE WAS INCREASED AND ADMINISTERED BY ELECTRIC SYRINGE.
  6. FORADIL [Concomitant]
     Active Substance: FORMOTEROL FUMARATE
  7. BISOCE [Suspect]
     Active Substance: BISOPROLOL
     Indication: CHRONIC OBSTRUCTIVE PULMONARY DISEASE
     Route: 048
     Dates: start: 20140417, end: 20140419
  8. ATORVASTATIN [Concomitant]
     Active Substance: ATORVASTATIN
     Route: 048
  9. KARDEGIC [Concomitant]
     Active Substance: ASPIRIN LYSINE
     Route: 048
  10. XATRAL [Suspect]
     Active Substance: ALFUZOSIN
     Indication: BENIGN PROSTATIC HYPERPLASIA
     Route: 048
  11. INEXIUM [Concomitant]
     Active Substance: ESOMEPRAZOLE
     Route: 048
  12. STAGID [Concomitant]
     Active Substance: METFORMIN PAMOATE
     Route: 048

REACTIONS (1)
  - Circulatory collapse [Recovered/Resolved]

NARRATIVE: CASE EVENT DATE: 20140419
